FAERS Safety Report 22389159 (Version 1)
Quarter: 2023Q2

REPORT INFORMATION
  Report Type: Spontaneous
  Country: US (occurrence: None)
  Receive Date: 20230530
  Receipt Date: 20230530
  Transmission Date: 20230722
  Serious: No
  Sender: FDA-Public Use
  Company Number: None

PATIENT
  Sex: 0

DRUGS (1)
  1. FENTANYL [Suspect]
     Active Substance: FENTANYL

REACTIONS (4)
  - Hypersensitivity [None]
  - Near death experience [None]
  - Aggression [None]
  - Loss of consciousness [None]
